FAERS Safety Report 11710783 (Version 1)
Quarter: 2015Q4

REPORT INFORMATION
  Report Type: Spontaneous
  Country: US (occurrence: US)
  Receive Date: 20151104
  Receipt Date: 20151104
  Transmission Date: 20160304
  Serious: No
  Sender: FDA-Public Use
  Company Number: US-ELI_LILLY_AND_COMPANY-US201103005839

PATIENT
  Age: 69 Year
  Sex: Female

DRUGS (3)
  1. THYROID [Concomitant]
     Active Substance: LEVOTHYROXINE\LIOTHYRONINE
  2. FORTEO [Suspect]
     Active Substance: TERIPARATIDE
     Dosage: 20 UG, QD
  3. FORTEO [Suspect]
     Active Substance: TERIPARATIDE
     Indication: OSTEOPOROSIS
     Dosage: 20 UG, QD
     Dates: start: 201102

REACTIONS (9)
  - Malaise [Unknown]
  - Dry skin [Unknown]
  - Somnolence [Unknown]
  - Lipiduria [Unknown]
  - Eye pruritus [Unknown]
  - Pain in extremity [Unknown]
  - Decreased appetite [Unknown]
  - Drug dose omission [Unknown]
  - Hypertension [Recovering/Resolving]

NARRATIVE: CASE EVENT DATE: 201102
